FAERS Safety Report 19012109 (Version 1)
Quarter: 2021Q1

REPORT INFORMATION
  Report Type: Other
  Country: CA (occurrence: CA)
  Receive Date: 20210316
  Receipt Date: 20210316
  Transmission Date: 20210420
  Serious: Yes (Other)
  Sender: FDA-Public Use
  Company Number: CA-APOTEX-2021AP005532

PATIENT
  Age: 24 Year
  Sex: Female

DRUGS (4)
  1. MAGNESIUM SULFATE. [Suspect]
     Active Substance: MAGNESIUM SULFATE
     Indication: VENTRICULAR TACHYCARDIA
     Dosage: UNK
     Route: 042
  2. LIDOCAINE. [Suspect]
     Active Substance: LIDOCAINE
     Indication: VENTRICULAR TACHYCARDIA
     Dosage: UNK
     Route: 042
  3. SALBUTAMOL [Suspect]
     Active Substance: ALBUTEROL
     Indication: ASTHMA
     Dosage: 5 MILLIGRAM, QD
     Route: 065
  4. METOPROLOL. [Suspect]
     Active Substance: METOPROLOL
     Indication: VENTRICULAR TACHYCARDIA
     Dosage: 12.5 MILLIGRAM, BID
     Route: 048

REACTIONS (4)
  - Bundle branch block left [Recovered/Resolved]
  - Ventricular tachycardia [Recovered/Resolved]
  - Premature labour [Recovered/Resolved]
  - Ventricular extrasystoles [Recovered/Resolved]
